FAERS Safety Report 23647315 (Version 2)
Quarter: 2024Q2

REPORT INFORMATION
  Report Type: Spontaneous
  Country: HU (occurrence: HU)
  Receive Date: 20240319
  Receipt Date: 20240405
  Transmission Date: 20240715
  Serious: Yes (Life-Threatening, Hospitalization)
  Sender: FDA-Public Use
  Company Number: HU-TEVA-VS-3169906

PATIENT
  Age: 20 Year
  Sex: Female

DRUGS (6)
  1. METHYLPREDNISOLONE [Suspect]
     Active Substance: METHYLPREDNISOLONE
     Indication: Juvenile idiopathic arthritis
     Route: 042
  2. BOSENTAN [Suspect]
     Active Substance: BOSENTAN
     Indication: Acute kidney injury
     Route: 065
  3. DESMOPRESSIN ACETATE [Suspect]
     Active Substance: DESMOPRESSIN ACETATE
     Indication: Haemorrhage
     Route: 042
  4. AZATHIOPRINE [Suspect]
     Active Substance: AZATHIOPRINE
     Indication: Juvenile idiopathic arthritis
     Route: 065
  5. CYCLOPHOSPHAMIDE [Suspect]
     Active Substance: CYCLOPHOSPHAMIDE
     Indication: Acute kidney injury
     Dosage: SINGLE DOSE
     Route: 042
  6. ALBUMIN HUMAN [Suspect]
     Active Substance: ALBUMIN HUMAN
     Indication: Acute kidney injury
     Route: 065

REACTIONS (3)
  - Drug ineffective [Unknown]
  - Anaemia [Recovered/Resolved]
  - Haemorrhage [Recovered/Resolved]
